FAERS Safety Report 5353504-1 (Version None)
Quarter: 2007Q2

REPORT INFORMATION
  Report Type: 
  Country: None (occurrence: None)
  Receive Date: 20070608
  Receipt Date: 20070601
  Transmission Date: 20071010
  Serious: Yes (Death, Life-Threatening, Hospitalization)
  Sender: FDA-Public Use
  Company Number: 430002E07BEL

PATIENT
  Age: 74 Year
  Sex: Male

DRUGS (3)
  1. NOVANTRONE [Suspect]
     Dosage: 12.6
     Dates: start: 20060612, end: 20060616
  2. CYTARABINE [Suspect]
     Dosage: 180
     Dates: start: 20060612, end: 20060618
  3. ETOPOSIDE [Suspect]
     Dates: start: 20060612, end: 20060614

REACTIONS (3)
  - HEPATITIS TOXIC [None]
  - PNEUMONITIS [None]
  - RESPIRATORY FAILURE [None]
